FAERS Safety Report 9461027 (Version 1)
Quarter: 2013Q3

REPORT INFORMATION
  Report Type: Report from Study
  Country: BR (occurrence: BR)
  Receive Date: 20130816
  Receipt Date: 20130816
  Transmission Date: 20140515
  Serious: Yes (Hospitalization, Other)
  Sender: FDA-Public Use
  Company Number: BR-ROCHE-1040262

PATIENT
  Age: 52 Year
  Sex: Female
  Weight: 66 kg

DRUGS (5)
  1. ACTEMRA [Suspect]
     Indication: RHEUMATOID ARTHRITIS
     Route: 065
     Dates: start: 201007
  2. PRELONE [Concomitant]
     Route: 065
  3. AVAR [Concomitant]
     Route: 065
  4. NAPROSYN [Concomitant]
     Route: 065
  5. RIVOTRIL [Concomitant]
     Route: 065

REACTIONS (6)
  - Pneumonia [Recovered/Resolved]
  - Foot deformity [Unknown]
  - Rib fracture [Recovered/Resolved]
  - Syncope [Recovered/Resolved]
  - Bone disorder [Recovered/Resolved]
  - Lung disorder [Unknown]
